FAERS Safety Report 6445958-4 (Version None)
Quarter: 2009Q4

REPORT INFORMATION
  Report Type: 
  Country: None (occurrence: None)
  Receive Date: 20091119
  Receipt Date: 20090327
  Transmission Date: 20100525
  Serious: No
  Sender: FDA-Public Use
  Company Number: A0775916A

PATIENT
  Age: 73 Year
  Sex: Female

DRUGS (2)
  1. BUPROPION HYDROCHLORIDE [Suspect]
     Indication: DEPRESSION
     Dosage: 150MG TWICE PER DAY
     Route: 048
     Dates: start: 20080801, end: 20090313
  2. PREMARIN [Concomitant]

REACTIONS (3)
  - DIZZINESS [None]
  - EAR PAIN [None]
  - TINNITUS [None]
